FAERS Safety Report 5358675-9 (Version None)
Quarter: 2007Q2

REPORT INFORMATION
  Report Type: 
  Country: None (occurrence: None)
  Receive Date: 20070615
  Receipt Date: 20070525
  Transmission Date: 20071010
  Serious: No
  Sender: FDA-Public Use
  Company Number: US-JNJFOC-20070403063

PATIENT
  Sex: Female

DRUGS (4)
  1. INVEGA [Suspect]
     Indication: SCHIZOAFFECTIVE DISORDER
     Route: 048
  2. DEPAKOTE [Concomitant]
  3. LAMICTAL [Concomitant]
  4. GEODON [Concomitant]

REACTIONS (3)
  - HAIR GROWTH ABNORMAL [None]
  - SWELLING FACE [None]
  - VISUAL DISTURBANCE [None]
